FAERS Safety Report 9449559 (Version 2)
Quarter: 2014Q1

REPORT INFORMATION
  Report Type: Spontaneous
  Country: IT (occurrence: IT)
  Receive Date: 20130809
  Receipt Date: 20140319
  Transmission Date: 20141002
  Serious: Yes (Hospitalization)
  Sender: FDA-Public Use
  Company Number: IT-009507513-1308ITA002391

PATIENT
  Age: 65 Year
  Sex: Female

DRUGS (1)
  1. EFFICIB [Suspect]
     Indication: DIABETES MELLITUS
     Dosage: 2 DOSE (UNIT), DAILY
     Route: 048
     Dates: start: 20110411

REACTIONS (1)
  - Hyperparathyroidism primary [Unknown]
